FAERS Safety Report 20599635 (Version 2)
Quarter: 2022Q1

REPORT INFORMATION
  Report Type: Spontaneous
  Country: US (occurrence: None)
  Receive Date: 20220316
  Receipt Date: 20220316
  Transmission Date: 20220424
  Serious: No
  Sender: FDA-Public Use
  Company Number: US-ROCHE-2782961

PATIENT
  Sex: Female
  Weight: 61.290 kg

DRUGS (3)
  1. XOLAIR [Suspect]
     Active Substance: OMALIZUMAB
     Indication: Urticaria
     Dosage: 2 SHORTS EACH VISIT,ONGOING-NO
     Route: 065
     Dates: start: 202001, end: 202012
  2. XOLAIR [Suspect]
     Active Substance: OMALIZUMAB
     Dosage: SHORT EACH VISIT, ONGOING-YES
     Route: 065
     Dates: start: 202101
  3. ZYRTEC [Concomitant]
     Active Substance: CETIRIZINE HYDROCHLORIDE
     Indication: Urticaria
     Route: 048

REACTIONS (3)
  - Pregnancy [Unknown]
  - Product use issue [Unknown]
  - No adverse event [Unknown]
